FAERS Safety Report 6431640-6 (Version None)
Quarter: 2009Q4

REPORT INFORMATION
  Report Type: 
  Country: None (occurrence: None)
  Receive Date: 20091103
  Receipt Date: 20091019
  Transmission Date: 20100525
  Serious: Yes (Hospitalization)
  Sender: FDA-Public Use
  Company Number: 02100-JPN-04-0094

PATIENT
  Age: 70 Year
  Sex: Male
  Weight: 68 kg

DRUGS (5)
  1. PLETAL [Suspect]
     Indication: CEREBRAL INFARCTION
     Dosage: 81 MG, QD, ORAL
     Route: 048
     Dates: start: 20040225, end: 20040331
  2. MS COLD CATAPLASM (CATAPLASMATA 3-14) TAPE (INCLUDING POULTICE) [Concomitant]
  3. LOXONIN (LOXOPROFEN SODIUM) [Concomitant]
  4. RHYTHMY (RILMAZAFONE) TABLET [Concomitant]
  5. FRANDOL S (ISOSORBIDE DINITRATE) TAPE (INCLUDING POULTICE) [Concomitant]

REACTIONS (12)
  - ABDOMINAL DISCOMFORT [None]
  - ANXIETY [None]
  - ATRIAL FLUTTER [None]
  - ATRIOVENTRICULAR BLOCK FIRST DEGREE [None]
  - CONTUSION [None]
  - FALL [None]
  - GAIT DISTURBANCE [None]
  - HYPERTENSION [None]
  - LOSS OF CONSCIOUSNESS [None]
  - MALAISE [None]
  - MUSCULAR WEAKNESS [None]
  - VENTRICULAR EXTRASYSTOLES [None]
